FAERS Safety Report 10357289 (Version 1)
Quarter: 2014Q3

REPORT INFORMATION
  Report Type: Spontaneous
  Country: US (occurrence: None)
  Receive Date: 20140730
  Receipt Date: 20140730
  Transmission Date: 20150326
  Serious: Yes (Hospitalization)
  Sender: FDA-Public Use
  Company Number: 2014US003455

PATIENT
  Age: 31 Year
  Sex: Female

DRUGS (1)
  1. ICLUSIG [Suspect]
     Active Substance: PONATINIB
     Indication: ACUTE LYMPHOCYTIC LEUKAEMIA RECURRENT
     Dosage: 45 MG (15 MG TAB X 3), QD, ORAL
     Route: 048
     Dates: start: 20140627, end: 20140718

REACTIONS (9)
  - Transplant [None]
  - Blood pressure increased [None]
  - Abdominal distension [None]
  - Swelling face [None]
  - Skin exfoliation [None]
  - Blood potassium increased [None]
  - Dizziness [None]
  - Generalised erythema [None]
  - Asthenia [None]
